FAERS Safety Report 25889627 (Version 1)
Quarter: 2025Q4

REPORT INFORMATION
  Report Type: Spontaneous
  Country: TR (occurrence: TR)
  Receive Date: 20251007
  Receipt Date: 20251007
  Transmission Date: 20260118
  Serious: Yes (Other)
  Sender: ORGANON
  Company Number: TR-ORGANON-O2509TUR002298

PATIENT
  Age: 70 Year
  Sex: Male

DRUGS (1)
  1. HYZAAR [Suspect]
     Active Substance: HYDROCHLOROTHIAZIDE\LOSARTAN POTASSIUM
     Indication: Hypertension
     Dosage: UNK (2.5 WEEKS)

REACTIONS (6)
  - Myocardial infarction [Recovered/Resolved]
  - Respiratory distress [Recovered/Resolved]
  - Headache [Unknown]
  - Dizziness [Unknown]
  - Prostatic disorder [Not Recovered/Not Resolved]
  - Product dose omission issue [Unknown]

NARRATIVE: CASE EVENT DATE: 20250901
